FAERS Safety Report 8598686-3 (Version None)
Quarter: 2012Q3

REPORT INFORMATION
  Report Type: 
  Country: None (occurrence: None)
  Receive Date: 20120803
  Receipt Date: 20120719
  Transmission Date: 20120928
  Serious: Yes (Hospitalization, Other)
  Sender: FDA-Public Use
  Company Number: 2012-000512

PATIENT
  Age: 66 Year
  Sex: Female

DRUGS (9)
  1. ACTONEL [Suspect]
     Indication: OSTEOPOROSIS
     Dosage: 35 MG ONCE WEEKLY, ORAL
     Route: 048
     Dates: start: 20030101, end: 20100622
  2. VERAPAMIL [Concomitant]
  3. VITAMIN D (COLECALCIFEROL) [Concomitant]
  4. VITAMIN E [Concomitant]
  5. ACTONEL [Suspect]
     Indication: OSTEOPOROSIS
     Dosage: 30 MG, 1/WEEK, ORAL
     Route: 048
     Dates: start: 20020301, end: 20030101
  6. SYNTHROID [Concomitant]
  7. CALCIUM [Concomitant]
  8. ALENDRONATE SODIUM [Suspect]
     Indication: OSTEOPOROSIS
     Dosage: 70 MG, ONCE WEEKLY, ORAL
     Route: 048
     Dates: start: 20081206, end: 20100501
  9. ASPIRIN [Concomitant]

REACTIONS (10)
  - RADICULITIS LUMBOSACRAL [None]
  - PULMONARY EMBOLISM [None]
  - POST PROCEDURAL COMPLICATION [None]
  - STRESS FRACTURE [None]
  - FALL [None]
  - INTERVERTEBRAL DISC PROTRUSION [None]
  - ATYPICAL FEMUR FRACTURE [None]
  - LIMB ASYMMETRY [None]
  - OSTEOARTHRITIS [None]
  - DEEP VEIN THROMBOSIS [None]
